FAERS Safety Report 8507638-0 (Version None)
Quarter: 2012Q3

REPORT INFORMATION
  Report Type: 
  Country: None (occurrence: None)
  Receive Date: 20120713
  Receipt Date: 20120706
  Transmission Date: 20120928
  Serious: No
  Sender: FDA-Public Use
  Company Number: US-BIOGENIDEC-2012BI023970

PATIENT
  Age: 43 Year
  Sex: Male

DRUGS (4)
  1. TYSABRI [Suspect]
     Indication: MULTIPLE SCLEROSIS
     Route: 042
     Dates: start: 20120106
  2. WELLBUTRIN [Concomitant]
     Indication: BIPOLAR DISORDER
  3. RISPERDAL [Concomitant]
     Indication: BIPOLAR DISORDER
  4. CLONAZEPAM [Concomitant]
     Indication: BIPOLAR DISORDER

REACTIONS (4)
  - IRRITABILITY [None]
  - AGITATION [None]
  - DEAFNESS TRANSITORY [None]
  - DIZZINESS [None]
